FAERS Safety Report 12701996 (Version 2)
Quarter: 2016Q3

REPORT INFORMATION
  Report Type: Spontaneous
  Country: JP (occurrence: JP)
  Receive Date: 20160831
  Receipt Date: 20160908
  Transmission Date: 20161109
  Serious: Yes (Other)
  Sender: FDA-Public Use
  Company Number: JP-BAUSCH-BL-2016-020701

PATIENT
  Age: 66 Year
  Sex: Male

DRUGS (1)
  1. METRONIDAZOLE. [Suspect]
     Active Substance: METRONIDAZOLE
     Indication: CHOLANGITIS
     Route: 048

REACTIONS (3)
  - Toxic encephalopathy [Recovered/Resolved]
  - Coma [Recovering/Resolving]
  - Hemiplegia [Unknown]
